FAERS Safety Report 9246582 (Version 1)
Quarter: 2013Q2

REPORT INFORMATION
  Report Type: Spontaneous
  Country: US (occurrence: US)
  Receive Date: 20130422
  Receipt Date: 20130422
  Transmission Date: 20140414
  Serious: No
  Sender: FDA-Public Use
  Company Number: US-ASTELLAS-2012US012006

PATIENT
  Age: 71 Year
  Sex: Female

DRUGS (1)
  1. LEXISCAN [Suspect]
     Indication: PRODUCT USED FOR UNKNOWN INDICATION
     Dosage: 0.4 MG, TOTAL DOSE
     Route: 042
     Dates: start: 20121130, end: 20121130

REACTIONS (2)
  - Defaecation urgency [Recovered/Resolved]
  - Diarrhoea [Recovered/Resolved]
